FAERS Safety Report 7167353-5 (Version None)
Quarter: 2010Q4

REPORT INFORMATION
  Report Type: 
  Country: None (occurrence: None)
  Receive Date: 20101216
  Receipt Date: 20101208
  Transmission Date: 20110411
  Serious: Yes (Hospitalization)
  Sender: FDA-Public Use
  Company Number: US-AMGEN-USASP2010008276

PATIENT

DRUGS (2)
  1. ENBREL [Suspect]
     Indication: PSORIATIC ARTHROPATHY
     Dosage: 50 MG, QWK
     Dates: start: 20041208
  2. ENBREL [Suspect]
     Dosage: 50 MG, QWK
     Dates: start: 20070101

REACTIONS (3)
  - BACK PAIN [None]
  - PSORIATIC ARTHROPATHY [None]
  - TOOTHACHE [None]
